FAERS Safety Report 21196722 (Version 1)
Quarter: 2022Q3

REPORT INFORMATION
  Report Type: Spontaneous
  Country: US (occurrence: None)
  Receive Date: 20220810
  Receipt Date: 20220810
  Transmission Date: 20221027
  Serious: Yes (Hospitalization)
  Sender: FDA-Public Use
  Company Number: None

PATIENT
  Age: 32 Year
  Sex: Female

DRUGS (1)
  1. MAVYRET [Suspect]
     Active Substance: GLECAPREVIR\PIBRENTASVIR
     Dates: start: 20220804, end: 20220807

REACTIONS (4)
  - Pruritus [None]
  - Dyspnoea [None]
  - Burning sensation [None]
  - Pharyngeal swelling [None]

NARRATIVE: CASE EVENT DATE: 20220807
